FAERS Safety Report 13164191 (Version 1)
Quarter: 2017Q1

REPORT INFORMATION
  Report Type: Spontaneous
  Country: US (occurrence: US)
  Receive Date: 20170130
  Receipt Date: 20170130
  Transmission Date: 20170428
  Serious: Yes (Death)
  Sender: FDA-Public Use
  Company Number: US-EMERGENT BIOSOLUTIONS-16BA00140SP

PATIENT
  Age: 66 Year
  Sex: Female
  Weight: 64.1 kg

DRUGS (1)
  1. BAT [Suspect]
     Active Substance: EQUINE BOTULINUM NEUROTOXIN A/B/C/D/E/F/G IMMUNE FAB2
     Indication: BOTULISM
     Dosage: 18 ML, SINGLE
     Route: 042
     Dates: start: 20160914, end: 20160914

REACTIONS (1)
  - Death [Fatal]

NARRATIVE: CASE EVENT DATE: 20161031
